FAERS Safety Report 9375410 (Version 2)
Quarter: 2013Q3

REPORT INFORMATION
  Report Type: Spontaneous
  Country: US (occurrence: US)
  Receive Date: 20130628
  Receipt Date: 20130725
  Transmission Date: 20140515
  Serious: Yes (Hospitalization)
  Sender: FDA-Public Use
  Company Number: US-GLAXOSMITHKLINE-A0788420A

PATIENT
  Age: 49 Year
  Sex: Male

DRUGS (14)
  1. AVANDIA [Suspect]
     Indication: TYPE 2 DIABETES MELLITUS
     Dosage: 8MG PER DAY
     Route: 048
     Dates: start: 20050624, end: 20061212
  2. DIOVAN [Concomitant]
  3. GLUCOTROL XL [Concomitant]
  4. HUMALOG [Concomitant]
  5. LANTUS [Concomitant]
  6. LASIX [Concomitant]
  7. LIPITOR [Concomitant]
  8. METFORMIN [Concomitant]
  9. NEUROTIN [Concomitant]
  10. STARLIX [Concomitant]
  11. TOPROL XL [Concomitant]
  12. TRICOR [Concomitant]
  13. VIAGRA [Concomitant]
  14. ADVAIR [Concomitant]

REACTIONS (2)
  - Cardiac failure congestive [Not Recovered/Not Resolved]
  - Diabetes mellitus [Unknown]
